FAERS Safety Report 8504454-0 (Version None)
Quarter: 2012Q3

REPORT INFORMATION
  Report Type: 
  Country: None (occurrence: None)
  Receive Date: 20120711
  Receipt Date: 20120705
  Transmission Date: 20120928
  Serious: Yes (Hospitalization)
  Sender: FDA-Public Use
  Company Number: US-B.I. PHARMACEUTICALS,INC./RIDGEFIELD-2012-BP-15014BP

PATIENT
  Age: 58 Year
  Sex: Female

DRUGS (3)
  1. METFORMIN HCL [Concomitant]
  2. CYMBALTA [Concomitant]
  3. TRADJENTA [Suspect]
     Indication: GLYCOSYLATED HAEMOGLOBIN

REACTIONS (4)
  - FATIGUE [None]
  - NAUSEA [None]
  - BLOOD GLUCOSE INCREASED [None]
  - VERTIGO [None]
